FAERS Safety Report 7015041-8 (Version None)
Quarter: 2010Q3

REPORT INFORMATION
  Report Type: 
  Country: None (occurrence: None)
  Receive Date: 20100927
  Receipt Date: 20100917
  Transmission Date: 20110219
  Serious: Yes (Other)
  Sender: FDA-Public Use
  Company Number: FR-JNJFOC-20100907089

PATIENT
  Age: 39 Year
  Sex: Female

DRUGS (5)
  1. SUFENTANIL CITRATE [Suspect]
     Indication: ANAESTHESIA
     Route: 042
  2. ACETAMINOPHEN [Suspect]
     Route: 065
  3. ACETAMINOPHEN [Suspect]
     Indication: PROPHYLAXIS
     Route: 065
  4. MORPHINE [Suspect]
     Indication: PRODUCT USED FOR UNKNOWN INDICATION
     Route: 065
  5. KETOPROFEN [Suspect]
     Indication: PROPHYLAXIS
     Route: 065

REACTIONS (4)
  - COLONIC PSEUDO-OBSTRUCTION [None]
  - DRUG EXPOSURE DURING PREGNANCY [None]
  - HYPERTHERMIA [None]
  - PAIN [None]
